FAERS Safety Report 10665269 (Version 1)
Quarter: 2014Q4

REPORT INFORMATION
  Report Type: Spontaneous
  Country: US (occurrence: None)
  Receive Date: 20141208
  Receipt Date: 20141208
  Transmission Date: 20150529
  Serious: No
  Sender: FDA-Public Use
  Company Number: 2014TUS007051

PATIENT
  Age: 58 Year
  Sex: Male

DRUGS (10)
  1. BRINTELLIX [Suspect]
     Active Substance: VORTIOXETINE HYDROBROMIDE
     Indication: SUICIDAL IDEATION
     Route: 048
  2. KLONOPIN [Concomitant]
     Active Substance: CLONAZEPAM
  3. AMLODIPINE [Concomitant]
     Active Substance: AMLODIPINE BESYLATE
  4. TOPOMAX (TOPIRAMATE) [Concomitant]
  5. ATENOLOL (ATENOLOL) [Concomitant]
     Active Substance: ATENOLOL
  6. LISINOPRIL (LISINOPRIL) [Concomitant]
     Active Substance: LISINOPRIL
  7. BRINTELLIX [Suspect]
     Active Substance: VORTIOXETINE HYDROBROMIDE
     Indication: BIPOLAR DISORDER
     Route: 048
  8. MORPHINE (MORPHINE) [Concomitant]
  9. CELEXA [Concomitant]
     Active Substance: CITALOPRAM HYDROBROMIDE
  10. LAMICTAL [Concomitant]
     Active Substance: LAMOTRIGINE

REACTIONS (2)
  - Blood pressure increased [None]
  - Psychotic disorder [None]
